FAERS Safety Report 19739094 (Version 1)
Quarter: 2021Q3

REPORT INFORMATION
  Report Type: Spontaneous
  Country: US (occurrence: US)
  Receive Date: 20210824
  Receipt Date: 20210824
  Transmission Date: 20211014
  Serious: No
  Sender: FDA-Public Use
  Company Number: US-SA-2021SA279134

PATIENT
  Sex: Female

DRUGS (21)
  1. DIPHENOXYLATE [Concomitant]
     Active Substance: DIPHENOXYLATE
  2. IRON [Concomitant]
     Active Substance: IRON
  3. ONDANSETRON [Concomitant]
     Active Substance: ONDANSETRON
  4. CLOTRIMAZOLE. [Concomitant]
     Active Substance: CLOTRIMAZOLE
  5. NYSTATIN. [Concomitant]
     Active Substance: NYSTATIN
  6. TRELEGY ELLIPTA [Concomitant]
     Active Substance: FLUTICASONE FUROATE\UMECLIDINIUM BROMIDE\VILANTEROL TRIFENATATE
  7. VENTOLIN HFA [Concomitant]
     Active Substance: ALBUTEROL SULFATE
  8. METOPROLOL. [Concomitant]
     Active Substance: METOPROLOL
  9. DULOXETINE. [Concomitant]
     Active Substance: DULOXETINE
  10. FLUTICASONE. [Concomitant]
     Active Substance: FLUTICASONE
  11. HYDROCODONE [Concomitant]
     Active Substance: HYDROCODONE
  12. VITAMINS NOS [Concomitant]
     Active Substance: VITAMINS
  13. PROMETHAZINE [Concomitant]
     Active Substance: PROMETHAZINE HYDROCHLORIDE
  14. CLONAZEPAM. [Concomitant]
     Active Substance: CLONAZEPAM
  15. IPRATROPIUM [Concomitant]
     Active Substance: IPRATROPIUM
  16. LEVOTHYROXIN [Concomitant]
     Active Substance: LEVOTHYROXINE
  17. DUPIXENT [Suspect]
     Active Substance: DUPILUMAB
     Indication: DERMATITIS ATOPIC
     Dosage: 300 MG/2ML, QOW
     Route: 058
     Dates: start: 20210617
  18. CREON [Concomitant]
     Active Substance: PANCRELIPASE AMYLASE\PANCRELIPASE LIPASE\PANCRELIPASE PROTEASE
  19. LANTUS [Concomitant]
     Active Substance: INSULIN GLARGINE
  20. OMEPRAZOLE. [Concomitant]
     Active Substance: OMEPRAZOLE
  21. VITAMIN D3 [Concomitant]
     Active Substance: CHOLECALCIFEROL

REACTIONS (1)
  - Inappropriate schedule of product administration [Unknown]
